FAERS Safety Report 9375738 (Version 3)
Quarter: 2013Q4

REPORT INFORMATION
  Report Type: Spontaneous
  Country: US (occurrence: US)
  Receive Date: 20130628
  Receipt Date: 20131011
  Transmission Date: 20140711
  Serious: Yes (Hospitalization, Other)
  Sender: FDA-Public Use
  Company Number: US-AMGEN-USASP2013045616

PATIENT
  Age: 66 Year
  Sex: Female

DRUGS (1)
  1. ENBREL [Suspect]
     Indication: RHEUMATOID ARTHRITIS
     Dosage: 50 MG, QWK
     Route: 058
     Dates: start: 20050401

REACTIONS (10)
  - Sciatica [Recovered/Resolved]
  - Dizziness [Not Recovered/Not Resolved]
  - Surgery [Unknown]
  - Nausea [Not Recovered/Not Resolved]
  - Wound [Recovered/Resolved]
  - Muscular weakness [Not Recovered/Not Resolved]
  - Scoliosis [Unknown]
  - Nodule [Recovered/Resolved]
  - Fungal infection [Recovered/Resolved]
  - Injection site pain [Not Recovered/Not Resolved]
